FAERS Safety Report 4944245-0 (Version None)
Quarter: 2006Q1

REPORT INFORMATION
  Report Type: 
  Country: None (occurrence: None)
  Receive Date: 20060309
  Receipt Date: 20060306
  Transmission Date: 20060701
  Serious: Yes (Hospitalization)
  Sender: FDA-Public Use
  Company Number: 2005BI022617

PATIENT
  Age: 48 Year
  Sex: Female

DRUGS (1)
  1. AVONEX [Suspect]
     Indication: MULTIPLE SCLEROSIS
     Dosage: 30 UG; QW; IM
     Route: 030
     Dates: start: 19980101

REACTIONS (7)
  - ARTHRALGIA [None]
  - BEDRIDDEN [None]
  - CATHETER RELATED COMPLICATION [None]
  - DEVICE DISLOCATION [None]
  - PAIN IN EXTREMITY [None]
  - SKIN DISORDER [None]
  - TREATMENT NONCOMPLIANCE [None]
